FAERS Safety Report 7642061-2 (Version None)
Quarter: 2011Q3

REPORT INFORMATION
  Report Type: 
  Country: None (occurrence: None)
  Receive Date: 20110728
  Receipt Date: 20110714
  Transmission Date: 20111222
  Serious: Yes (Hospitalization)
  Sender: FDA-Public Use
  Company Number: DE-ELI_LILLY_AND_COMPANY-DE201104007755

PATIENT
  Age: 49 Year
  Sex: Female

DRUGS (6)
  1. FORTEO [Suspect]
     Indication: OSTEOPOROSIS
     Dosage: UNK, QD
     Route: 058
     Dates: start: 20110401, end: 20110101
  2. VITAMIN B-12 [Concomitant]
  3. CREON [Concomitant]
  4. SUCRALFATE [Concomitant]
  5. OMEPRAZOLE [Concomitant]
  6. TEGRETOL [Concomitant]

REACTIONS (4)
  - RESPIRATORY DISORDER [None]
  - HOSPITALISATION [None]
  - RENAL FUNCTION TEST ABNORMAL [None]
  - INJECTION SITE HAEMATOMA [None]
